FAERS Safety Report 15517399 (Version 1)
Quarter: 2018Q4

REPORT INFORMATION
  Report Type: Report from Study
  Country: US (occurrence: US)
  Receive Date: 20181017
  Receipt Date: 20181017
  Transmission Date: 20190205
  Serious: Yes (Hospitalization, Other)
  Sender: FDA-Public Use
  Company Number: US-MYLANLABS-2018M1076603

PATIENT
  Age: 72 Year
  Sex: Male
  Weight: 70.9 kg

DRUGS (4)
  1. ACYCLOVIR                          /00587301/ [Concomitant]
     Active Substance: ACYCLOVIR
     Indication: PROPHYLAXIS
     Dosage: UNK
  2. PIPERACILLIN / TAZOBACTAM (ZOYSN) [Concomitant]
     Indication: PRODUCT USED FOR UNKNOWN INDICATION
     Dosage: UNK
  3. AZACITIDINE. [Suspect]
     Active Substance: AZACITIDINE
     Indication: PRODUCT USED FOR UNKNOWN INDICATION
     Dosage: 75 MG, UNK (FOR 7 DAYS)
     Route: 058
     Dates: start: 20180515, end: 20180814
  4. MOXIFLOXACIN. [Concomitant]
     Active Substance: MOXIFLOXACIN
     Indication: PROPHYLAXIS
     Dosage: UNK

REACTIONS (7)
  - Hypotension [Not Recovered/Not Resolved]
  - Ascites [Not Recovered/Not Resolved]
  - Gastritis [Unknown]
  - Urosepsis [Unknown]
  - Pleural effusion [Unknown]
  - Atelectasis [Unknown]
  - Right ventricular enlargement [Unknown]

NARRATIVE: CASE EVENT DATE: 20180731
